FAERS Safety Report 6160289-8 (Version None)
Quarter: 2009Q2

REPORT INFORMATION
  Report Type: 
  Country: None (occurrence: None)
  Receive Date: 20090416
  Receipt Date: 20090416
  Transmission Date: 20091009
  Serious: Yes (Other)
  Sender: FDA-Public Use
  Company Number: None

PATIENT

DRUGS (1)
  1. RELENZA [Suspect]
     Indication: INFLUENZA
     Dosage: 10MG DAILY INHAL DAYS
     Route: 055
     Dates: start: 20090303, end: 20090312

REACTIONS (1)
  - DRUG LABEL CONFUSION [None]
